FAERS Safety Report 7466034-8 (Version None)
Quarter: 2011Q2

REPORT INFORMATION
  Report Type: 
  Country: None (occurrence: None)
  Receive Date: 20110509
  Receipt Date: 20100607
  Transmission Date: 20111010
  Serious: No
  Sender: FDA-Public Use
  Company Number: US-ALEXION-A201000653

PATIENT
  Sex: Female

DRUGS (4)
  1. SOLIRIS [Suspect]
     Dosage: 900 MG, Q2W
     Route: 042
     Dates: start: 20100405
  2. PREDNISONE [Concomitant]
     Dosage: UNK
     Route: 048
  3. SOLIRIS [Suspect]
     Indication: PAROXYSMAL NOCTURNAL HAEMOGLOBINURIA
     Dosage: 600 MG, QWX4
     Route: 042
     Dates: start: 20100308, end: 20100329
  4. CYCLOSPORINE [Concomitant]
     Dosage: UNK
     Route: 048

REACTIONS (1)
  - PLATELET COUNT DECREASED [None]
